FAERS Safety Report 4595512-4 (Version None)
Quarter: 2005Q1

REPORT INFORMATION
  Report Type: 
  Country: None (occurrence: None)
  Receive Date: 20050224
  Receipt Date: 20050204
  Transmission Date: 20050727
  Serious: Yes (Other)
  Sender: FDA-Public Use
  Company Number: USA050290199

PATIENT
  Age: 33 Year
  Sex: Female

DRUGS (2)
  1. CYMBALTA [Suspect]
     Indication: STRESS INCONTINENCE
     Dosage: 40 MG/2 DAY
     Dates: start: 20040801
  2. CYMBALTA [Suspect]
     Indication: URINARY INCONTINENCE
     Dosage: 40 MG/2 DAY
     Dates: start: 20040801

REACTIONS (2)
  - CONVERSION DISORDER [None]
  - RASH [None]
